FAERS Safety Report 21522041 (Version 1)
Quarter: 2022Q4

REPORT INFORMATION
  Report Type: Spontaneous
  Country: US (occurrence: None)
  Receive Date: 20221027
  Receipt Date: 20221027
  Transmission Date: 20230113
  Serious: No
  Sender: FDA-Public Use
  Company Number: None

PATIENT
  Sex: Male
  Weight: 111.13 kg

DRUGS (14)
  1. TEMOZOLOMIDE [Suspect]
     Active Substance: TEMOZOLOMIDE
     Indication: Brain neoplasm malignant
     Dosage: FREQUENCY : DAILY;?
     Route: 048
  2. ACETAMINOPHEN [Concomitant]
     Active Substance: ACETAMINOPHEN
  3. ASPIRIN [Concomitant]
     Active Substance: ASPIRIN
  4. ATORVASTATIN [Concomitant]
     Active Substance: ATORVASTATIN
  5. BACLOFEN [Concomitant]
     Active Substance: BACLOFEN
  6. CELECOXIB [Concomitant]
     Active Substance: CELECOXIB
  7. DULOXETINE [Concomitant]
     Active Substance: DULOXETINE
  8. DEXAMETHASONE [Concomitant]
     Active Substance: DEXAMETHASONE
  9. LORATADINE [Concomitant]
     Active Substance: LORATADINE
  10. METOOROLOL [Concomitant]
  11. NIFEDIPINE [Concomitant]
     Active Substance: NIFEDIPINE
  12. OMEPRAZOLE [Concomitant]
     Active Substance: OMEPRAZOLE
  13. SODIUM CHLORIDE [Concomitant]
     Active Substance: SODIUM CHLORIDE
  14. VITAMIN D3 [Concomitant]
     Active Substance: CHOLECALCIFEROL

REACTIONS (1)
  - Hospice care [None]
